FAERS Safety Report 18564852 (Version 1)
Quarter: 2020Q4

REPORT INFORMATION
  Report Type: Spontaneous
  Country: US (occurrence: US)
  Receive Date: 20201130
  Receipt Date: 20201130
  Transmission Date: 20210114
  Serious: No
  Sender: FDA-Public Use
  Company Number: None

PATIENT
  Age: 32 Year
  Sex: Female

DRUGS (1)
  1. ENBREL [Suspect]
     Active Substance: ETANERCEPT
     Indication: RHEUMATOID ARTHRITIS
     Route: 058
     Dates: start: 20200716

REACTIONS (5)
  - Arthralgia [None]
  - Pain [None]
  - Respiratory disorder [None]
  - Product use issue [None]
  - Condition aggravated [None]

NARRATIVE: CASE EVENT DATE: 20201119
